FAERS Safety Report 5265597-0 (Version None)
Quarter: 2007Q1

REPORT INFORMATION
  Report Type: 
  Country: None (occurrence: None)
  Receive Date: 20061213
  Receipt Date: 20021022
  Transmission Date: 20070707
  Serious: No
  Sender: FDA-Public Use
  Company Number: 2002UW14468

PATIENT
  Age: 71 Year
  Sex: Female
  Weight: 90.7194 kg

DRUGS (11)
  1. ARIMIDEX [Suspect]
     Indication: BREAST CANCER
     Dosage: 1 MG QD PO
     Route: 048
     Dates: start: 19971008
  2. NOLVADEX [Suspect]
     Indication: BREAST CANCER
     Dosage: 20 MG QD PO
     Route: 048
     Dates: start: 19971008
  3. VITAMIN E [Concomitant]
  4. VITAMIN B COMPLEX CAP [Concomitant]
  5. MAGNESIUM [Concomitant]
  6. POTASSIUM ACETATE [Concomitant]
  7. GARLIC [Concomitant]
  8. GLUCOSAMINE W/CHONDROITIN SULFATES [Concomitant]
  9. CELEBREX [Concomitant]
  10. DERMATOP ^AVENTIS^ [Concomitant]
  11. RHINOCORT [Concomitant]

REACTIONS (1)
  - CATARACT [None]
